FAERS Safety Report 7008725-9 (Version None)
Quarter: 2010Q3

REPORT INFORMATION
  Report Type: 
  Country: None (occurrence: None)
  Receive Date: 20100922
  Receipt Date: 20100910
  Transmission Date: 20110219
  Serious: Yes (Hospitalization)
  Sender: FDA-Public Use
  Company Number: US-SANOFI-AVENTIS-2010SA054797

PATIENT
  Age: 60 Year
  Sex: Male
  Weight: 81.8 kg

DRUGS (10)
  1. CLOPIDOGREL BISULFATE [Suspect]
     Route: 048
     Dates: start: 20100803, end: 20100803
  2. CLOPIDOGREL BISULFATE [Suspect]
     Route: 048
     Dates: start: 20100804
  3. ALL OTHER THERAPEUTIC PRODUCTS [Suspect]
     Route: 065
     Dates: start: 20100804
  4. ASPIRIN [Concomitant]
     Route: 065
     Dates: start: 20100803
  5. DIAZEPAM [Concomitant]
     Dates: start: 20100823, end: 20100823
  6. NITROGLYCERIN ^SLOVAKOFARMA^ [Concomitant]
     Dates: start: 20100822, end: 20100824
  7. METOPROLOL TARTRATE [Concomitant]
     Dates: start: 20100802
  8. RANITIDINE [Concomitant]
     Dates: start: 20100822
  9. COLACE [Concomitant]
     Dates: start: 20100822, end: 20100824
  10. ACETAMINOPHEN [Concomitant]

REACTIONS (1)
  - NON-CARDIAC CHEST PAIN [None]
